FAERS Safety Report 17661142 (Version 1)
Quarter: 2020Q2

REPORT INFORMATION
  Report Type: Spontaneous
  Country: FR (occurrence: FR)
  Receive Date: 20200413
  Receipt Date: 20200413
  Transmission Date: 20200713
  Serious: Yes (Hospitalization)
  Sender: FDA-Public Use
  Company Number: FR-ACCORD-178440

PATIENT
  Age: 60 Year
  Sex: Female
  Weight: 92 kg

DRUGS (12)
  1. VOLIBRIS [Suspect]
     Active Substance: AMBRISENTAN
     Indication: PULMONARY ARTERIAL HYPERTENSION
     Dosage: STRENGTH: 5 MG FILM-COATED TABLET
     Route: 048
     Dates: start: 20200103
  2. DOLIPRANE [Concomitant]
     Active Substance: ACETAMINOPHEN
  3. DIFFU K [Concomitant]
     Active Substance: POTASSIUM CHLORIDE
  4. ADCIRCA [Suspect]
     Active Substance: TADALAFIL
     Indication: PULMONARY ARTERIAL HYPERTENSION
     Dosage: STRENGTH:20 MG, FILM-COATED TABLET
     Route: 048
     Dates: start: 20200103
  5. ULTIBRO BREEZHALER [Concomitant]
     Active Substance: GLYCOPYRRONIUM\INDACATEROL
  6. MONURIL [Concomitant]
     Active Substance: FOSFOMYCIN TROMETHAMINE
  7. ALDACTONE [Concomitant]
     Active Substance: SPIRONOLACTONE
     Dosage: SRENGTH: 25 MG, SCORED FILM-COATED TABLET
  8. SPECIAFOLDINE [Concomitant]
     Active Substance: FOLIC ACID
     Dosage: SRENGTH: 5 MG, TABLET
  9. ANASTROZOLE. [Suspect]
     Active Substance: ANASTROZOLE
     Indication: BREAST CANCER
     Route: 048
     Dates: start: 202001
  10. OGASTORO [Concomitant]
     Active Substance: LANSOPRAZOLE
     Dosage: STRENGTH: 30 MG ORODISPERSIBLE TABLET
  11. LASILIX [Concomitant]
     Active Substance: FUROSEMIDE
  12. TARDYFERON [Concomitant]
     Active Substance: FERROUS SULFATE
     Dosage: STRENGTH: 80 MG COATED TABLET

REACTIONS (1)
  - Autoimmune haemolytic anaemia [Recovering/Resolving]

NARRATIVE: CASE EVENT DATE: 20200303
